FAERS Safety Report 9528611 (Version 1)
Quarter: 2013Q1

REPORT INFORMATION
  Report Type: Spontaneous
  Country: US (occurrence: None)
  Receive Date: 20130314
  Receipt Date: 20130314
  Transmission Date: 20140127
  Serious: No
  Sender: FDA-Public Use
  Company Number: 1211USA011784

PATIENT
  Age: 51 Year
  Sex: Female

DRUGS (3)
  1. VICTRELIS (BOCEPREVIR)CAPSULE, 200MG [Suspect]
     Indication: CHRONIC HEPATITIS C
     Route: 048
     Dates: start: 201204, end: 2012
  2. PEGASYS (INTERFERON ALFA-2A) [Suspect]
  3. RIBAPAK (RIBAVIRIN) [Suspect]

REACTIONS (2)
  - No therapeutic response [None]
  - Hepatitis C RNA increased [None]
